FAERS Safety Report 24972587 (Version 1)
Quarter: 2025Q1

REPORT INFORMATION
  Report Type: Report from Study
  Country: CA (occurrence: CA)
  Receive Date: 20250215
  Receipt Date: 20250215
  Transmission Date: 20250409
  Serious: Yes (Death, Hospitalization, Other)
  Sender: CSL BEHRING
  Company Number: CA-BEH-2024183344

PATIENT
  Age: 84 Year
  Sex: Male
  Weight: 72.7 kg

DRUGS (19)
  1. HIZENTRA [Suspect]
     Active Substance: HUMAN IMMUNOGLOBULIN G
     Indication: Secondary immunodeficiency
     Dosage: 8 G, QW
     Route: 065
     Dates: start: 20240725
  2. HIZENTRA [Suspect]
     Active Substance: HUMAN IMMUNOGLOBULIN G
     Route: 065
     Dates: start: 2024
  3. HIZENTRA [Suspect]
     Active Substance: HUMAN IMMUNOGLOBULIN G
     Dosage: 8 G, QW
     Route: 065
     Dates: start: 202410
  4. HIZENTRA [Suspect]
     Active Substance: HUMAN IMMUNOGLOBULIN G
     Dosage: (PRODUCT STRENGTH REPORTED AS 6G), QW
     Route: 058
     Dates: start: 20240705
  5. ELIQUIS [Concomitant]
     Active Substance: APIXABAN
  6. ACETAMINOPHEN [Concomitant]
     Active Substance: ACETAMINOPHEN
  7. DULOXETINE [Concomitant]
     Active Substance: DULOXETINE
  8. AMIODARONE [Concomitant]
     Active Substance: AMIODARONE
  9. AMLODIPINE [Concomitant]
     Active Substance: AMLODIPINE BESYLATE
  10. ATORVASTATIN [Concomitant]
     Active Substance: ATORVASTATIN
  11. DUTASTERIDE [Concomitant]
     Active Substance: DUTASTERIDE
  12. METFORMIN [Concomitant]
     Active Substance: METFORMIN HYDROCHLORIDE
  13. SILODOSIN [Concomitant]
     Active Substance: SILODOSIN
  14. PREGABALIN [Concomitant]
     Active Substance: PREGABALIN
  15. DEXILANT [Concomitant]
     Active Substance: DEXLANSOPRAZOLE
  16. VITAMIN D NOS [Concomitant]
     Active Substance: CHOLECALCIFEROL\ERGOCALCIFEROL
  17. CALCIUM [Concomitant]
     Active Substance: CALCIUM
  18. VITAMIN B12 [Concomitant]
     Active Substance: CYANOCOBALAMIN
  19. ALVESCO [Concomitant]
     Active Substance: CICLESONIDE

REACTIONS (4)
  - Death [Fatal]
  - Pneumonia [Unknown]
  - Drug level decreased [Unknown]
  - Therapy change [Unknown]

NARRATIVE: CASE EVENT DATE: 20250101
